FAERS Safety Report 11496206 (Version 1)
Quarter: 2015Q3

REPORT INFORMATION
  Report Type: Spontaneous
  Country: ES (occurrence: ES)
  Receive Date: 20150911
  Receipt Date: 20150911
  Transmission Date: 20151125
  Serious: Yes (Other)
  Sender: FDA-Public Use
  Company Number: ES-JAZZ-2015-ES-013022

PATIENT
  Age: 12 Year
  Sex: Female

DRUGS (1)
  1. ASPARAGINASE [Suspect]
     Active Substance: ASPARAGINASE
     Indication: ACUTE LYMPHOCYTIC LEUKAEMIA

REACTIONS (4)
  - Pancreatic pseudocyst [Unknown]
  - Type 1 diabetes mellitus [Unknown]
  - Pancreatic necrosis [Unknown]
  - Pancreatitis [Unknown]
